FAERS Safety Report 7122611-5 (Version None)
Quarter: 2010Q4

REPORT INFORMATION
  Report Type: 
  Country: None (occurrence: None)
  Receive Date: 20101124
  Receipt Date: 20101116
  Transmission Date: 20110411
  Serious: Yes (Other)
  Sender: FDA-Public Use
  Company Number: US-PFIZER INC-2010103596

PATIENT
  Sex: Male
  Weight: 67.12 kg

DRUGS (10)
  1. TOVIAZ [Suspect]
     Indication: HYPERTONIC BLADDER
     Dosage: 4 MG, 1X/DAY
     Route: 048
     Dates: start: 20100806, end: 20100901
  2. TOVIAZ [Suspect]
     Indication: BENIGN PROSTATIC HYPERPLASIA
  3. TOVIAZ [Suspect]
     Indication: NEOPLASM PROSTATE
  4. ZOCOR [Concomitant]
     Indication: BLOOD CHOLESTEROL INCREASED
     Dosage: 20 MG, 1X/DAY
     Route: 048
  5. PROSCAR [Concomitant]
     Dosage: 5 MG, 1X/DAY
     Route: 048
     Dates: start: 20090812
  6. VESICARE [Concomitant]
     Route: 048
     Dates: start: 20090812, end: 20100806
  7. VESICARE [Concomitant]
     Dosage: 10 MG, 1X/DAY
     Dates: start: 20100101
  8. DOXAZOSIN MESYLATE [Concomitant]
     Dosage: 4 MG, 1X/DAY
     Route: 048
     Dates: start: 20090812
  9. ACYCLOVIR [Concomitant]
     Dosage: FREQUENCY: 2X/DAY,
     Route: 048
     Dates: start: 20100707
  10. AMITRIPTYLINE HYDROCHLORIDE [Concomitant]
     Dosage: 10 MG, 1X/DAY
     Route: 048

REACTIONS (4)
  - BLOOD CHOLESTEROL ABNORMAL [None]
  - DEPRESSION [None]
  - DYSKINESIA [None]
  - MIGRAINE [None]
